FAERS Safety Report 15764197 (Version 2)
Quarter: 2019Q1

REPORT INFORMATION
  Report Type: Spontaneous
  Country: US (occurrence: US)
  Receive Date: 20181227
  Receipt Date: 20190102
  Transmission Date: 20190417
  Serious: No
  Sender: FDA-Public Use
  Company Number: US-PCCINC-2017-PEL-003275

PATIENT

DRUGS (3)
  1. GABLOFEN [Suspect]
     Active Substance: BACLOFEN
     Indication: SPINAL CORD INJURY
  2. BACLOFEN. [Concomitant]
     Active Substance: BACLOFEN
     Dosage: 30 MG, UNK
     Route: 048
  3. GABLOFEN [Suspect]
     Active Substance: BACLOFEN
     Indication: MUSCLE SPASTICITY
     Dosage: 876.2 MG, QD
     Route: 037

REACTIONS (5)
  - Device malfunction [Recovered/Resolved]
  - Withdrawal syndrome [Unknown]
  - Hyperhidrosis [Unknown]
  - Muscle spasticity [Unknown]
  - Hypertonia [Unknown]

NARRATIVE: CASE EVENT DATE: 201710
